FAERS Safety Report 7215914-7 (Version None)
Quarter: 2011Q1

REPORT INFORMATION
  Report Type: 
  Country: None (occurrence: None)
  Receive Date: 20110104
  Receipt Date: 20110104
  Transmission Date: 20110831
  Serious: Yes (Other)
  Sender: FDA-Public Use
  Company Number: None

PATIENT
  Age: 66 Year
  Sex: Female
  Weight: 88.4514 kg

DRUGS (2)
  1. ALPRAZOLAM [Suspect]
     Indication: ANXIETY
     Dosage: 1 OR 2 DAILY 1 AT NIGHT PO ( A YEAR OR SO)
     Route: 048
  2. ALPRAZOLAM [Suspect]
     Indication: INSOMNIA
     Dosage: 1 OR 2 DAILY 1 AT NIGHT PO ( A YEAR OR SO)
     Route: 048

REACTIONS (2)
  - DRUG INEFFECTIVE [None]
  - PRODUCT SUBSTITUTION ISSUE [None]
